FAERS Safety Report 10232368 (Version 1)
Quarter: 2014Q2

REPORT INFORMATION
  Report Type: Spontaneous
  Country: FR (occurrence: FR)
  Receive Date: 20140612
  Receipt Date: 20140612
  Transmission Date: 20141212
  Serious: Yes (Other)
  Sender: FDA-Public Use
  Company Number: FR-CELGENEUS-056-21880-14061562

PATIENT
  Sex: Male

DRUGS (5)
  1. REVLIMID [Suspect]
     Indication: PLASMA CELL MYELOMA
     Route: 048
     Dates: start: 200804
  2. DEXAMETHASONE [Concomitant]
     Indication: PLASMA CELL MYELOMA
     Route: 065
     Dates: start: 200601, end: 200705
  3. DEXAMETHASONE [Concomitant]
     Route: 065
     Dates: end: 200903
  4. VOLTARENE [Concomitant]
     Indication: BACK PAIN
     Route: 065
     Dates: start: 201002
  5. VOLTARENE [Concomitant]
     Route: 065

REACTIONS (2)
  - Prostate cancer [Unknown]
  - Diabetes mellitus [Unknown]
